FAERS Safety Report 11208174 (Version 1)
Quarter: 2015Q2

REPORT INFORMATION
  Report Type: Spontaneous
  Country: US (occurrence: None)
  Receive Date: 20150619
  Receipt Date: 20150619
  Transmission Date: 20150821
  Serious: Yes (Hospitalization)
  Sender: FDA-Public Use
  Company Number: None

PATIENT
  Age: 62 Year
  Sex: Male
  Weight: 82.1 kg

DRUGS (10)
  1. OMEGAE [Concomitant]
  2. VIT [Concomitant]
  3. COUMADIN [Suspect]
     Active Substance: WARFARIN SODIUM
     Indication: ATRIAL FIBRILLATION
     Dosage: 5MG  DAILY WITH HS MEAL PO?DATES OF USE: CHRONIC
     Route: 048
  4. KLOR [Concomitant]
  5. IMDUR [Concomitant]
     Active Substance: ISOSORBIDE MONONITRATE
  6. LOPRESSOR [Concomitant]
     Active Substance: METOPROLOL TARTRATE
  7. COREG [Concomitant]
     Active Substance: CARVEDILOL
  8. LASIX [Concomitant]
     Active Substance: FUROSEMIDE
  9. FOLVITE [Concomitant]
     Active Substance: FOLIC ACID
  10. ZESTRIL [Concomitant]
     Active Substance: LISINOPRIL

REACTIONS (4)
  - Iron deficiency anaemia [None]
  - Haematuria [None]
  - Coagulopathy [None]
  - Vitamin K deficiency [None]

NARRATIVE: CASE EVENT DATE: 20140813
